FAERS Safety Report 16350577 (Version 2)
Quarter: 2019Q2

REPORT INFORMATION
  Report Type: Spontaneous
  Country: CZ (occurrence: CZ)
  Receive Date: 20190524
  Receipt Date: 20190613
  Transmission Date: 20190711
  Serious: Yes (Hospitalization)
  Sender: FDA-Public Use
  Company Number: CZ-ROCHE-2324537

PATIENT
  Sex: Male

DRUGS (22)
  1. GAZYVARO [Suspect]
     Active Substance: OBINUTUZUMAB
     Route: 041
     Dates: start: 20190403
  2. BISEPTOL [Concomitant]
     Active Substance: SULFAMETHOXAZOLE\TRIMETHOPRIM
     Indication: PROPHYLAXIS
     Route: 048
  3. MILURIT [Concomitant]
     Active Substance: ALLOPURINOL
     Route: 065
  4. CYNT [MOXONIDINE] [Concomitant]
     Route: 048
  5. CLOPIDOGREL [Concomitant]
     Active Substance: CLOPIDOGREL BISULFATE
     Route: 048
  6. ZALDIAR [Concomitant]
     Active Substance: ACETAMINOPHEN\TRAMADOL HYDROCHLORIDE
     Dosage: 37,5 MG/325 MG?1 TBL IF VAS}2 EACH 6 HOURS AT MAXIMUM
     Route: 048
  7. CHLORAMBUCIL [Suspect]
     Active Substance: CHLORAMBUCIL
     Indication: CHRONIC LYMPHOCYTIC LEUKAEMIA
     Route: 065
     Dates: start: 20190301
  8. PREDNISONE. [Concomitant]
     Active Substance: PREDNISONE
     Route: 048
  9. VIGANTOL [COLECALCIFEROL] [Concomitant]
     Active Substance: CHOLECALCIFEROL
     Dosage: 20 DROPS
     Route: 048
  10. GAZYVARO [Suspect]
     Active Substance: OBINUTUZUMAB
     Route: 041
     Dates: start: 20190319
  11. ANOPYRIN [Concomitant]
     Active Substance: ASPIRIN
     Route: 048
  12. FURON [FUROSEMIDE] [Concomitant]
     Route: 048
  13. EUTHYROX [Concomitant]
     Active Substance: LEVOTHYROXINE SODIUM
     Route: 048
  14. GAZYVARO [Suspect]
     Active Substance: OBINUTUZUMAB
     Indication: CHRONIC LYMPHOCYTIC LEUKAEMIA
     Route: 041
     Dates: start: 20190301
  15. NOLPAZA [Concomitant]
     Active Substance: PANTOPRAZOLE SODIUM
     Route: 065
  16. PREDUCTAL [Concomitant]
     Active Substance: TRIMETAZIDINE DIHYDROCHLORIDE
     Route: 048
  17. HUMALOG MIX [Concomitant]
     Active Substance: INSULIN LISPRO
     Dosage: 26-24-24 IU
     Route: 058
  18. ATROVENT [Concomitant]
     Active Substance: IPRATROPIUM BROMIDE
     Dosage: 2-2-2 INHALATIONS AS NECESSARY
     Route: 065
  19. METOPROLOL. [Concomitant]
     Active Substance: METOPROLOL
     Route: 048
  20. MONO MACK [Concomitant]
     Active Substance: ISOSORBIDE MONONITRATE
     Route: 048
  21. GAZYVARO [Suspect]
     Active Substance: OBINUTUZUMAB
     Route: 041
     Dates: start: 20190307
  22. VEROSPIRON [Concomitant]
     Active Substance: SPIRONOLACTONE
     Route: 065

REACTIONS (2)
  - Acute myocardial infarction [Recovering/Resolving]
  - Chest pain [Recovered/Resolved]

NARRATIVE: CASE EVENT DATE: 20190301
